FAERS Safety Report 8912856 (Version 1)
Quarter: 2012Q4

REPORT INFORMATION
  Report Type: 
  Country: US (occurrence: US)
  Receive Date: 20121116
  Receipt Date: 20121116
  Transmission Date: 20130627
  Serious: Yes (Hospitalization)
  Sender: FDA-Public Use
  Company Number: US-ROCHE-1156078

PATIENT
  Sex: Female

DRUGS (9)
  1. XOLAIR [Suspect]
     Indication: PRODUCT USED FOR UNKNOWN INDICATION
     Route: 065
  2. BENICAR [Concomitant]
  3. SINGULAIR [Concomitant]
  4. HYDROCHLOROTHIAZIDE [Concomitant]
  5. ASACOL [Concomitant]
  6. NEXIUM [Concomitant]
  7. LEVOTHYROXINE [Concomitant]
  8. SYMBICORT [Concomitant]
  9. SIMVASTATIN [Concomitant]

REACTIONS (1)
  - Asthma [Unknown]
